FAERS Safety Report 10179644 (Version 1)
Quarter: 2014Q2

REPORT INFORMATION
  Report Type: Spontaneous
  Country: US (occurrence: US)
  Receive Date: 20140519
  Receipt Date: 20140519
  Transmission Date: 20141212
  Serious: No
  Sender: FDA-Public Use
  Company Number: US-PFIZER INC-2014136265

PATIENT
  Sex: Female

DRUGS (1)
  1. LYRICA [Suspect]
     Dosage: UNK, 1X/DAY (AT NIGHT)

REACTIONS (4)
  - Malaise [Unknown]
  - Headache [Unknown]
  - Hypokinesia [Unknown]
  - Nausea [Unknown]
